FAERS Safety Report 6260208-X (Version None)
Quarter: 2009Q3

REPORT INFORMATION
  Report Type: 
  Country: None (occurrence: None)
  Receive Date: 20090708
  Receipt Date: 20090629
  Transmission Date: 20100115
  Serious: Yes (Other)
  Sender: FDA-Public Use
  Company Number: B0582583A

PATIENT
  Sex: Male

DRUGS (12)
  1. BUDESONIDE [Suspect]
     Indication: DRUG USE FOR UNKNOWN INDICATION
     Dosage: 50MCG TWICE PER DAY
     Route: 055
  2. BUDESONIDE [Suspect]
     Dosage: 50MCG TWICE PER DAY
     Route: 055
  3. SERETIDE [Suspect]
     Indication: DRUG USE FOR UNKNOWN INDICATION
     Route: 055
  4. OMEPRAZOLE [Concomitant]
     Dosage: 20MG PER DAY
     Route: 048
     Dates: start: 20080724
  5. METOPROLOL TARTRATE [Concomitant]
     Dosage: 200MG PER DAY
     Route: 048
  6. SPIRIVA [Concomitant]
     Dosage: 18MCG PER DAY
  7. SIMVASTATIN [Concomitant]
     Dosage: 20MG PER DAY
     Route: 048
  8. METFORMIN HCL [Concomitant]
     Dosage: 500MG TWICE PER DAY
     Route: 048
  9. METAMUCIL [Concomitant]
     Dosage: 3.4G PER DAY
     Route: 048
  10. FOLIC ACID [Concomitant]
     Dosage: 5MG PER DAY
     Route: 048
     Dates: start: 20090206
  11. XYZAL [Concomitant]
     Dosage: 5MG PER DAY
     Route: 048
  12. TRAMADOL HCL [Concomitant]
     Dosage: 50MG TWICE PER DAY
     Route: 048

REACTIONS (1)
  - ADRENAL DISORDER [None]
